FAERS Safety Report 8148764-8 (Version None)
Quarter: 2012Q1

REPORT INFORMATION
  Report Type: 
  Country: None (occurrence: None)
  Receive Date: 20120218
  Receipt Date: 20110707
  Transmission Date: 20120608
  Serious: No
  Sender: FDA-Public Use
  Company Number: US-ALLERGAN-1109167US

PATIENT
  Sex: Female

DRUGS (2)
  1. BOTULINUM TOXIN TYPE A [Suspect]
     Indication: TORTICOLLIS
     Dosage: UNK
     Route: 030
     Dates: start: 20070101
  2. BOTULINUM TOXIN TYPE A [Suspect]
     Dosage: UNK
     Route: 030
     Dates: start: 20110501

REACTIONS (4)
  - FATIGUE [None]
  - MALAISE [None]
  - INFLUENZA LIKE ILLNESS [None]
  - DIZZINESS [None]
